FAERS Safety Report 7418013-4 (Version None)
Quarter: 2011Q2

REPORT INFORMATION
  Report Type: 
  Country: None (occurrence: None)
  Receive Date: 20110412
  Receipt Date: 20110412
  Transmission Date: 20111010
  Serious: Yes (Life-Threatening)
  Sender: FDA-Public Use
  Company Number: None

PATIENT
  Age: 21 Year
  Sex: Female

DRUGS (1)
  1. DEXAMETHASONE SODIUM PHOSPHATE [Suspect]
     Indication: PERIARTHRITIS
     Dosage: 80MA/MIN ONCE IONTOPHORESIC 15 MINUTES - 1 HOUR
     Route: 044

REACTIONS (6)
  - URTICARIA [None]
  - DYSPNOEA [None]
  - PRURITUS [None]
  - SWELLING [None]
  - RASH [None]
  - DYSPHAGIA [None]
